FAERS Safety Report 5238148-4 (Version None)
Quarter: 2007Q1

REPORT INFORMATION
  Report Type: 
  Country: None (occurrence: None)
  Receive Date: 20070215
  Receipt Date: 20070208
  Transmission Date: 20070707
  Serious: Yes (Hospitalization)
  Sender: FDA-Public Use
  Company Number: US-BRISTOL-MYERS SQUIBB COMPANY-13674106

PATIENT
  Age: 58 Year
  Sex: Female
  Weight: 74 kg

DRUGS (8)
  1. CETUXIMAB [Suspect]
     Indication: BREAST CANCER METASTATIC
     Route: 040
     Dates: start: 20070119, end: 20070119
  2. CARBOPLATIN [Suspect]
     Indication: BREAST CANCER METASTATIC
     Route: 040
     Dates: start: 20070119, end: 20070119
  3. AMITRIPTYLINE HCL [Concomitant]
     Route: 048
  4. VERAPAMIL EXTENDED-RELEASE [Concomitant]
     Route: 048
  5. FLEXERIL [Concomitant]
     Indication: PAIN
     Route: 048
  6. ATROVENT [Concomitant]
     Route: 045
  7. COMPAZINE [Concomitant]
     Indication: NAUSEA
     Route: 048
  8. PULMICORT [Concomitant]
     Route: 055

REACTIONS (1)
  - CELLULITIS [None]
